FAERS Safety Report 5819856-0 (Version None)
Quarter: 2008Q3

REPORT INFORMATION
  Report Type: 
  Country: None (occurrence: None)
  Receive Date: 20080723
  Receipt Date: 20080718
  Transmission Date: 20090109
  Serious: No
  Sender: FDA-Public Use
  Company Number: AU-MERCK-0807AUS00212M

PATIENT
  Sex: Female

DRUGS (1)
  1. PROPECIA [Suspect]
     Indication: ANDROGENETIC ALOPECIA
     Route: 048

REACTIONS (2)
  - DRUG EXPOSURE BEFORE PREGNANCY [None]
  - PATERNAL DRUGS AFFECTING FOETUS [None]
